FAERS Safety Report 10476465 (Version 1)
Quarter: 2014Q3

REPORT INFORMATION
  Report Type: Spontaneous
  Country: US (occurrence: US)
  Receive Date: 20140925
  Receipt Date: 20140925
  Transmission Date: 20150326
  Serious: Yes (Hospitalization)
  Sender: FDA-Public Use
  Company Number: US-GLAXOSMITHKLINE-A1090913A

PATIENT

DRUGS (2)
  1. VELCADE [Suspect]
     Active Substance: BORTEZOMIB
     Indication: PLASMA CELL MYELOMA
     Dosage: 1.8MG SEE DOSAGE TEXT
     Route: 042
     Dates: start: 20101227, end: 20110502
  2. MELPHALAN [Suspect]
     Active Substance: MELPHALAN
     Indication: PLASMA CELL MYELOMA
     Dosage: 12MG SEE DOSAGE TEXT
     Route: 048
     Dates: start: 20101227, end: 20110502

REACTIONS (3)
  - Asthenia [Unknown]
  - Dehydration [Unknown]
  - Confusional state [Unknown]
